FAERS Safety Report 20690587 (Version 1)
Quarter: 2022Q2

REPORT INFORMATION
  Report Type: Spontaneous
  Country: US (occurrence: None)
  Receive Date: 20220406
  Receipt Date: 20220406
  Transmission Date: 20220721
  Serious: No
  Sender: FDA-Public Use
  Company Number: None

PATIENT
  Age: 47 Year
  Sex: Female

DRUGS (1)
  1. HUMIRA [Suspect]
     Active Substance: ADALIMUMAB
     Indication: Crohn^s disease
     Dosage: INJECT 40 MG SUBCUTANEOUSLY ONCE A WEEK AS DIRECTED.     ?
     Route: 058
     Dates: start: 202111

REACTIONS (2)
  - Dyspnoea [None]
  - Abdominal pain upper [None]
